FAERS Safety Report 7335889-X (Version None)
Quarter: 2011Q1

REPORT INFORMATION
  Report Type: 
  Country: None (occurrence: None)
  Receive Date: 20110307
  Receipt Date: 20110225
  Transmission Date: 20110831
  Serious: Yes (Hospitalization)
  Sender: FDA-Public Use
  Company Number: US-ASTRAZENECA-2011SE10696

PATIENT
  Age: 58 Year
  Sex: Male

DRUGS (2)
  1. SEROQUEL [Suspect]
     Indication: SLEEP DISORDER
     Dosage: 300MG IN MORNING AND TWO 600MG TABLET (1200MG)AT BED TIME
     Route: 048
     Dates: start: 20090101
  2. SEROQUEL [Suspect]
     Indication: BIPOLAR DISORDER
     Dosage: 300MG IN MORNING AND TWO 600MG TABLET (1200MG)AT BED TIME
     Route: 048
     Dates: start: 20090101

REACTIONS (2)
  - DRUG DOSE OMISSION [None]
  - MANIA [None]
